FAERS Safety Report 7497927-3 (Version None)
Quarter: 2011Q2

REPORT INFORMATION
  Report Type: 
  Country: None (occurrence: None)
  Receive Date: 20110524
  Receipt Date: 20110513
  Transmission Date: 20111010
  Serious: Yes (Hospitalization)
  Sender: FDA-Public Use
  Company Number: US-BIOGENIDEC-2011BI004371

PATIENT
  Sex: Female

DRUGS (1)
  1. AVONEX [Suspect]
     Indication: MULTIPLE SCLEROSIS
     Route: 030
     Dates: start: 20080101

REACTIONS (7)
  - INTRA-ABDOMINAL HAEMATOMA [None]
  - BLADDER PROLAPSE [None]
  - GASTRIC BYPASS [None]
  - ABDOMINAL HERNIA [None]
  - INCISION SITE INFECTION [None]
  - EXCESSIVE SKIN [None]
  - IMPAIRED HEALING [None]
